FAERS Safety Report 7414045-0 (Version None)
Quarter: 2011Q2

REPORT INFORMATION
  Report Type: 
  Country: None (occurrence: None)
  Receive Date: 20110414
  Receipt Date: 20090501
  Transmission Date: 20111010
  Serious: No
  Sender: FDA-Public Use
  Company Number: 2009BI013341

PATIENT
  Sex: Female

DRUGS (1)
  1. TYSABRI [Suspect]
     Indication: MULTIPLE SCLEROSIS
     Route: 042
     Dates: start: 20081231

REACTIONS (6)
  - HEADACHE [None]
  - BACK PAIN [None]
  - GAIT DISTURBANCE [None]
  - FALL [None]
  - MEMORY IMPAIRMENT [None]
  - DRUG INEFFECTIVE [None]
